FAERS Safety Report 5504426-4 (Version None)
Quarter: 2007Q4

REPORT INFORMATION
  Report Type: 
  Country: None (occurrence: None)
  Receive Date: 20071101
  Receipt Date: 20071022
  Transmission Date: 20080405
  Serious: Yes (Hospitalization, Other)
  Sender: FDA-Public Use
  Company Number: US-PFIZER INC-2007088435

PATIENT
  Sex: Female
  Weight: 120.2 kg

DRUGS (2)
  1. BEXTRA [Suspect]
     Indication: HEAD INJURY
     Dates: start: 20040726, end: 20040826
  2. BEXTRA [Suspect]
     Indication: JOINT INJURY

REACTIONS (2)
  - CEREBROVASCULAR ACCIDENT [None]
  - THYROID DISORDER [None]
